FAERS Safety Report 11828104 (Version 1)
Quarter: 2015Q4

REPORT INFORMATION
  Report Type: Spontaneous
  Country: FR (occurrence: FR)
  Receive Date: 20151211
  Receipt Date: 20151211
  Transmission Date: 20160305
  Serious: Yes (Hospitalization)
  Sender: FDA-Public Use
  Company Number: FR-SA-2015SA205491

PATIENT
  Age: 78 Year
  Sex: Male

DRUGS (10)
  1. ZOCOR [Concomitant]
     Active Substance: SIMVASTATIN
  2. DAFALGAN [Concomitant]
     Active Substance: ACETAMINOPHEN
  3. PLAVIX [Concomitant]
     Active Substance: CLOPIDOGREL BISULFATE
  4. TEMERIT [Concomitant]
     Active Substance: NEBIVOLOL
  5. COLCHIMAX [Suspect]
     Active Substance: COLCHICINE\DICYCLOMINE HYDROCHLORIDE
     Route: 048
     Dates: end: 20151105
  6. KENZEN [Concomitant]
     Active Substance: CANDESARTAN
  7. LASILIX [Suspect]
     Active Substance: FUROSEMIDE
     Route: 048
  8. PREVISCAN [Suspect]
     Active Substance: FLUINDIONE
     Indication: ARRHYTHMIA
     Route: 048
     Dates: start: 201510
  9. DIFFU K [Concomitant]
     Active Substance: POTASSIUM CHLORIDE
  10. GLYCEROL\PARAFFIN [Concomitant]
     Active Substance: GLYCERIN\PARAFFIN

REACTIONS (4)
  - Haematuria [Recovering/Resolving]
  - Fatigue [Recovering/Resolving]
  - Acute prerenal failure [Recovering/Resolving]
  - Epistaxis [Recovering/Resolving]

NARRATIVE: CASE EVENT DATE: 20151104
